FAERS Safety Report 4686294-6 (Version None)
Quarter: 2005Q2

REPORT INFORMATION
  Report Type: 
  Country: None (occurrence: None)
  Receive Date: 20050606
  Receipt Date: 20050524
  Transmission Date: 20051028
  Serious: Yes (Hospitalization)
  Sender: FDA-Public Use
  Company Number: 2005080292

PATIENT
  Age: 83 Year
  Sex: Female
  Weight: 53 kg

DRUGS (8)
  1. MEDROL [Suspect]
     Indication: LUNG INFECTION
     Dosage: 16 MG (16 MG, 1 IN 1 D), ORAL
     Route: 048
     Dates: start: 20050215, end: 20050220
  2. PREVISCAN              (FLUINDIONE) [Suspect]
     Indication: ILL-DEFINED DISORDER
     Dosage: 0.25 DOSE FORMS (1 IN 1 D), ORAL
     Route: 048
     Dates: start: 19980101, end: 20050220
  3. FULID                       (ROXITHROMYCIN) [Suspect]
     Indication: LUNG INFECTION
     Dosage: 300 MG (300 MG, 1 IN 1 D), ORAL
     Route: 048
     Dates: start: 20050215, end: 20050220
  4. OMEPRAZOLE [Concomitant]
  5. CITALOPRAM HYDROBROMIDE [Concomitant]
  6. ALPRAZOLAM [Concomitant]
  7. TANAKAN (GINKGO BILOBA EXTRACT) [Concomitant]
  8. MOVICOL (MACROGOL, POTASSIUM CHLORIDE, SODIUM BICARBONATE, SODIUM CHLO [Concomitant]

REACTIONS (11)
  - ABDOMINAL WALL DISORDER [None]
  - ANAEMIA [None]
  - BLOOD CREATINE PHOSPHOKINASE INCREASED [None]
  - DRUG INTERACTION [None]
  - FALL [None]
  - HAEMATOMA [None]
  - INFECTION [None]
  - INTERNATIONAL NORMALISED RATIO INCREASED [None]
  - PLATELET COUNT DECREASED [None]
  - PROTHROMBIN LEVEL DECREASED [None]
  - RENAL FAILURE [None]
